FAERS Safety Report 6862134-1 (Version None)
Quarter: 2010Q3

REPORT INFORMATION
  Report Type: 
  Country: None (occurrence: None)
  Receive Date: 20100721
  Receipt Date: 20100706
  Transmission Date: 20110219
  Serious: Yes (Hospitalization, Other)
  Sender: FDA-Public Use
  Company Number: PHHY2010JP36074

PATIENT
  Sex: Female
  Weight: 51 kg

DRUGS (3)
  1. FLUVASTATIN [Suspect]
     Dosage: UNK
     Route: 048
     Dates: start: 20100312, end: 20100423
  2. AMLODIPINE [Concomitant]
     Indication: HYPERTENSION
     Dosage: 5 MG
     Route: 048
     Dates: start: 20071001
  3. LONGES [Concomitant]
     Indication: HYPERTENSION
     Dosage: 10 MG
     Route: 048
     Dates: start: 20071001

REACTIONS (6)
  - DECREASED APPETITE [None]
  - EOSINOPHIL COUNT INCREASED [None]
  - HEPATIC FUNCTION ABNORMAL [None]
  - LIVER DISORDER [None]
  - MALAISE [None]
  - PYREXIA [None]
